FAERS Safety Report 17415969 (Version 1)
Quarter: 2020Q1

REPORT INFORMATION
  Report Type: Spontaneous
  Country: US (occurrence: US)
  Receive Date: 20200130
  Receipt Date: 20200130
  Transmission Date: 20200409
  Serious: No
  Sender: FDA-Public Use
  Company Number: None

PATIENT
  Age: 84 Year
  Sex: Male

DRUGS (1)
  1. HYDROCHLOROTHIAZIDE(HYDROCHLOROTHIAZIDE 25MG TAB [Suspect]
     Active Substance: HYDROCHLOROTHIAZIDE
     Indication: HYPERTENSION
     Route: 048
     Dates: start: 20070828

REACTIONS (2)
  - Therapy change [None]
  - Hypokalaemia [None]

NARRATIVE: CASE EVENT DATE: 20191124
